FAERS Safety Report 5050367-9 (Version None)
Quarter: 2006Q3

REPORT INFORMATION
  Report Type: 
  Country: None (occurrence: None)
  Receive Date: 20060707
  Receipt Date: 20060621
  Transmission Date: 20061208
  Serious: Yes (Hospitalization)
  Sender: FDA-Public Use
  Company Number: IMP_2345_2006

PATIENT
  Age: 47 Year
  Sex: Female

DRUGS (2)
  1. CHLOROQUINE PHOSPHATE [Suspect]
     Indication: SYSTEMIC LUPUS ERYTHEMATOSUS
     Dosage: 250 MG QDAY
     Dates: start: 19960101
  2. HYDROXYCHLOROQUINE SULFATE [Suspect]
     Indication: SYSTEMIC LUPUS ERYTHEMATOSUS
     Dosage: 200 MG QDAY

REACTIONS (7)
  - ATRIOVENTRICULAR BLOCK THIRD DEGREE [None]
  - BREATH SOUNDS ABNORMAL [None]
  - CYANOSIS [None]
  - DIZZINESS [None]
  - EYE ROLLING [None]
  - LOSS OF CONSCIOUSNESS [None]
  - PALLOR [None]
